FAERS Safety Report 5847595-9 (Version None)
Quarter: 2008Q3

REPORT INFORMATION
  Report Type: 
  Country: None (occurrence: None)
  Receive Date: 20080818
  Receipt Date: 20080811
  Transmission Date: 20090109
  Serious: Yes (Hospitalization)
  Sender: FDA-Public Use
  Company Number: GB-SP-2008-02626

PATIENT
  Sex: Male

DRUGS (1)
  1. IMMUCYST [Suspect]
     Route: 065

REACTIONS (3)
  - BLISTER [None]
  - CONJUNCTIVITIS [None]
  - LUNG DISORDER [None]
